FAERS Safety Report 6530113-X (Version None)
Quarter: 2010Q1

REPORT INFORMATION
  Report Type: 
  Country: None (occurrence: None)
  Receive Date: 20100107
  Receipt Date: 20091231
  Transmission Date: 20100710
  Serious: Yes (Other)
  Sender: FDA-Public Use
  Company Number: CHPA2009US24408

PATIENT
  Sex: Female

DRUGS (1)
  1. GAS-X (NCH) [Suspect]
     Indication: FLATULENCE
     Dosage: A COUPLE OF STRIPS, UNK
     Route: 048
     Dates: start: 20091229, end: 20091229

REACTIONS (10)
  - EYELID OEDEMA [None]
  - HEADACHE [None]
  - HYPERSENSITIVITY [None]
  - LIP PAIN [None]
  - LIP SWELLING [None]
  - OROPHARYNGEAL PAIN [None]
  - RHINORRHOEA [None]
  - SENSITIVITY OF TEETH [None]
  - SNEEZING [None]
  - SWELLING FACE [None]
